FAERS Safety Report 12570364 (Version 1)
Quarter: 2016Q3

REPORT INFORMATION
  Report Type: Spontaneous
  Country: US (occurrence: None)
  Receive Date: 20160718
  Receipt Date: 20160718
  Transmission Date: 20161109
  Serious: Yes (Disabling)
  Sender: FDA-Public Use
  Company Number: None

PATIENT
  Age: 37 Year
  Sex: Female
  Weight: 111.59 kg

DRUGS (4)
  1. LISINOPRIL HCTZ [Concomitant]
     Active Substance: HYDROCHLOROTHIAZIDE\LISINOPRIL
  2. VALACYCLOVIR [Concomitant]
     Active Substance: VALACYCLOVIR HYDROCHLORIDE
  3. SYNTHROID [Concomitant]
     Active Substance: LEVOTHYROXINE SODIUM
  4. MIRENA [Suspect]
     Active Substance: LEVONORGESTREL
     Dates: start: 20160317, end: 20160715

REACTIONS (5)
  - Depression [None]
  - Menorrhagia [None]
  - Weight increased [None]
  - Abdominal pain [None]
  - Alopecia [None]

NARRATIVE: CASE EVENT DATE: 20160523
